FAERS Safety Report 5928803-2 (Version None)
Quarter: 2008Q4

REPORT INFORMATION
  Report Type: 
  Country: None (occurrence: None)
  Receive Date: 20081021
  Receipt Date: 20080718
  Transmission Date: 20090506
  Serious: Yes (Hospitalization)
  Sender: FDA-Public Use
  Company Number: CL000532008

PATIENT
  Sex: Female

DRUGS (4)
  1. CIPROFLOXACIN [Suspect]
     Indication: URINARY TRACT INFECTION
     Dosage: 1000MG, ORAL
     Route: 048
     Dates: start: 20080519, end: 20080602
  2. BUSCOPAN [Concomitant]
  3. METOCLOPRAMIDE [Concomitant]
  4. RANITIDINE [Concomitant]

REACTIONS (2)
  - RASH MACULO-PAPULAR [None]
  - RASH PRURITIC [None]
